FAERS Safety Report 8265717-X (Version None)
Quarter: 2012Q2

REPORT INFORMATION
  Report Type: 
  Country: None (occurrence: None)
  Receive Date: 20120403
  Receipt Date: 20120327
  Transmission Date: 20120825
  Serious: Yes (Other)
  Sender: FDA-Public Use
  Company Number: 131779

PATIENT
  Age: 67 Year
  Sex: Female

DRUGS (1)
  1. VECURONIUM BROMIDE [Suspect]
     Indication: SEDATIVE THERAPY
     Dosage: 2 MG ADMINISTERED EPIDURALLY

REACTIONS (3)
  - NEUROMUSCULAR BLOCK PROLONGED [None]
  - MEDICATION ERROR [None]
  - INCORRECT ROUTE OF DRUG ADMINISTRATION [None]
